FAERS Safety Report 21173749 (Version 1)
Quarter: 2022Q3

REPORT INFORMATION
  Report Type: Spontaneous
  Country: US (occurrence: US)
  Receive Date: 20220804
  Receipt Date: 20220804
  Transmission Date: 20221027
  Serious: No
  Sender: FDA-Public Use
  Company Number: US-PERRIGO-21US031151

PATIENT
  Age: 82 Year
  Sex: Female
  Weight: 81.633 kg

DRUGS (9)
  1. LORATADINE [Suspect]
     Active Substance: LORATADINE
     Indication: Rhinorrhoea
     Dosage: 10 MG, QD
     Route: 048
     Dates: start: 202111, end: 20211115
  2. LORATADINE [Suspect]
     Active Substance: LORATADINE
     Indication: Nasal congestion
  3. BROMELAINS\GLUTAMINE\QUERCETIN [Suspect]
     Active Substance: BROMELAINS\GLUTAMINE\QUERCETIN
     Indication: Supplementation therapy
     Dosage: 1 TABLET, SINGLE AT 1200
     Route: 048
     Dates: start: 202111, end: 202111
  4. GINKGO [Suspect]
     Active Substance: GINKGO
     Indication: Supplementation therapy
     Dosage: 1 TABLET, SINGLE AT 1200
     Route: 048
     Dates: start: 202111, end: 202111
  5. VITAMIN C [Suspect]
     Active Substance: ASCORBIC ACID
     Indication: Supplementation therapy
     Dosage: 1 TABLET, SINGLE AT 1200
     Route: 048
     Dates: start: 202111, end: 202111
  6. VITAMINS NOS [Suspect]
     Active Substance: VITAMINS
     Indication: Supplementation therapy
     Dosage: 1 TABLET, BID
     Route: 048
     Dates: start: 202111, end: 20211116
  7. VITAMINS [Suspect]
     Active Substance: VITAMINS
     Indication: Supplementation therapy
     Dosage: 1 TABLET, BID
     Route: 048
     Dates: start: 202111, end: 20211116
  8. VITAMIN D NOS [Suspect]
     Active Substance: VITAMIN D NOS
     Indication: Supplementation therapy
     Dosage: 1 TABLET, SINGLE AT 1200
     Route: 048
     Dates: start: 202111, end: 202111
  9. LEVOTHYROXINE [Concomitant]
     Active Substance: LEVOTHYROXINE
     Indication: Thyroid disorder
     Dosage: QAM
     Route: 065

REACTIONS (2)
  - Pruritus [Recovered/Resolved]
  - Off label use [Recovered/Resolved]

NARRATIVE: CASE EVENT DATE: 20211101
